FAERS Safety Report 8789263 (Version 1)
Quarter: 2012Q4

REPORT INFORMATION
  Report Type: Spontaneous
  Country: US (occurrence: None)
  Receive Date: 20120910
  Receipt Date: 20120910
  Transmission Date: 20130627
  Serious: Yes (Life-Threatening, Hospitalization)
  Sender: FDA-Public Use
  Company Number: None

PATIENT
  Age: 6 Year
  Sex: Male
  Weight: 26 kg

DRUGS (1)
  1. ACETAMINOPHEN/CODEINE PHOSPHATE [Suspect]
     Dosage: 2.5 tsp 4 hrs po
     Route: 048
     Dates: start: 20071112, end: 20071117

REACTIONS (5)
  - Overdose [None]
  - Unresponsive to stimuli [None]
  - Respiratory rate decreased [None]
  - Drug intolerance [None]
  - Oxygen saturation decreased [None]
